FAERS Safety Report 7534937-1 (Version None)
Quarter: 2011Q2

REPORT INFORMATION
  Report Type: 
  Country: None (occurrence: None)
  Receive Date: 20110609
  Receipt Date: 20110601
  Transmission Date: 20111010
  Serious: Yes (Other)
  Sender: FDA-Public Use
  Company Number: US-BIOGENIDEC-2011BI020694

PATIENT
  Age: 51 Year
  Sex: Female

DRUGS (8)
  1. LOSARTAN POTASSIUM [Concomitant]
  2. ENABLEX [Concomitant]
  3. PREVACID [Concomitant]
  4. TIZANIDINE HCL [Concomitant]
  5. LASIX [Concomitant]
  6. AVONEX [Suspect]
     Indication: MULTIPLE SCLEROSIS
     Route: 030
     Dates: end: 20090101
  7. FOSAMAX [Concomitant]
  8. METHOCARBAMOL [Concomitant]

REACTIONS (1)
  - NEPHROPATHY [None]
